FAERS Safety Report 8473711-9 (Version None)
Quarter: 2012Q2

REPORT INFORMATION
  Report Type: 
  Country: None (occurrence: None)
  Receive Date: 20120628
  Receipt Date: 20111007
  Transmission Date: 20120825
  Serious: Yes (Death)
  Sender: FDA-Public Use
  Company Number: US-MYLANLABS-2011S1019588

PATIENT
  Sex: Male

DRUGS (5)
  1. OMEPRAZOLE [Concomitant]
  2. REQUIP [Concomitant]
     Route: 048
  3. CLOZAPINE [Suspect]
     Indication: SCHIZOPHRENIA
     Route: 048
  4. BENZTROPINE MESYLATE [Concomitant]
  5. COGENTIN [Concomitant]
     Route: 048

REACTIONS (1)
  - DEATH [None]
